FAERS Safety Report 7971539-7 (Version None)
Quarter: 2011Q4

REPORT INFORMATION
  Report Type: 
  Country: None (occurrence: None)
  Receive Date: 20111212
  Receipt Date: 20111206
  Transmission Date: 20120403
  Serious: No
  Sender: FDA-Public Use
  Company Number: US-TEVA-308999USA

PATIENT
  Sex: Female

DRUGS (24)
  1. PROAIR HFA [Suspect]
     Indication: DYSPNOEA
  2. METOPROLOL TARTRATE [Concomitant]
     Dosage: 100 MILLIGRAM;
     Route: 048
  3. BYSTOLIC [Concomitant]
     Dosage: 20 MILLIGRAM;
  4. PLAVIX [Concomitant]
     Dosage: 75 MILLIGRAM;
     Route: 048
  5. PULMICORT [Concomitant]
  6. PROAIR HFA [Suspect]
     Indication: COUGH
     Route: 055
     Dates: start: 20111101
  7. AMLODIPINE BESYLATE [Concomitant]
     Dosage: 10 MILLIGRAM;
     Route: 048
  8. FLEXERIL [Concomitant]
     Dosage: 60 MILLIGRAM;
     Route: 048
  9. SPIRIVA [Concomitant]
     Route: 055
  10. FUROSEMIDE [Concomitant]
     Dosage: 40 MILLIGRAM;
     Route: 048
  11. METHOTREXATE [Concomitant]
     Dosage: .7143 MILLIGRAM;
     Route: 048
  12. TEKTURNA [Concomitant]
     Dosage: 300 MILLIGRAM;
     Route: 048
  13. TRIAMCINOLONE [Concomitant]
  14. TYLENOL W/ CODEINE [Concomitant]
     Route: 048
  15. ZOCOR [Concomitant]
     Dosage: 40 MILLIGRAM;
     Route: 048
  16. DOXYCYCLINE [Suspect]
     Route: 048
  17. STERAPRED [Concomitant]
  18. SOMA [Concomitant]
  19. ALBUTEROL SULFATE [Concomitant]
  20. ASMANEZ TWIST INHALER [Concomitant]
  21. PRILOSEC [Concomitant]
     Dosage: 20 MILLIGRAM;
     Route: 048
  22. DYAZIDE [Concomitant]
     Dosage: 37.5 MILLIGRAM;
     Route: 048
  23. IMDUR [Concomitant]
     Dosage: 30 MILLIGRAM;
     Route: 048
  24. XANAX [Concomitant]
     Route: 048

REACTIONS (1)
  - IMPETIGO [None]
